FAERS Safety Report 6779412-7 (Version None)
Quarter: 2010Q2

REPORT INFORMATION
  Report Type: 
  Country: None (occurrence: None)
  Receive Date: 20100618
  Receipt Date: 20100617
  Transmission Date: 20101027
  Serious: Yes (Death)
  Sender: FDA-Public Use
  Company Number: PHHY2010GB21260

PATIENT
  Sex: Male

DRUGS (3)
  1. CLOZARIL [Suspect]
     Indication: SCHIZOPHRENIA
     Dosage: 600MG
     Route: 048
     Dates: start: 19980203
  2. AMISULPRIDE [Concomitant]
     Indication: SCHIZOPHRENIA
     Dosage: 400MG
     Route: 048
  3. CLOMIPRAMINE [Concomitant]
     Indication: OBSESSIVE THOUGHTS
     Dosage: 150MG
     Route: 048

REACTIONS (2)
  - CARDIAC ARREST [None]
  - CIRCULATORY COLLAPSE [None]
